FAERS Safety Report 20992054 (Version 4)
Quarter: 2022Q3

REPORT INFORMATION
  Report Type: Other
  Country: AR (occurrence: AR)
  Receive Date: 20220622
  Receipt Date: 20220805
  Transmission Date: 20221026
  Serious: Yes (Other)
  Sender: FDA-Public Use
  Company Number: AR-002147023-NVSC2022AR124823

PATIENT
  Age: 41 Year
  Sex: Female

DRUGS (6)
  1. XOLAIR [Suspect]
     Active Substance: OMALIZUMAB
     Indication: Asthma
     Dosage: 4 DOSAGE FORM, QMO
     Route: 058
     Dates: start: 20210714
  2. XOLAIR [Suspect]
     Active Substance: OMALIZUMAB
     Indication: Asthma
     Dosage: 4 DOSAGE FORM
     Route: 065
     Dates: end: 202205
  3. XOLAIR [Suspect]
     Active Substance: OMALIZUMAB
     Dosage: 4 DOSAGE FORM
     Route: 065
     Dates: start: 20220624
  4. XOLAIR [Suspect]
     Active Substance: OMALIZUMAB
     Dosage: 4 DOSAGE FORM
     Route: 065
     Dates: start: 20220427, end: 202205
  5. FLUTICASONE FUROATE\VILANTEROL TRIFENATATE [Concomitant]
     Active Substance: FLUTICASONE FUROATE\VILANTEROL TRIFENATATE
     Indication: Product used for unknown indication
     Dosage: 10 MG, QD (NEUMOTROPIO)
  6. MONTRATE [Concomitant]
     Indication: Product used for unknown indication
     Dosage: 1 DOSAGE FORM, QD

REACTIONS (5)
  - Asthmatic crisis [Recovered/Resolved]
  - Arrhythmia [Unknown]
  - Condition aggravated [Unknown]
  - Hypersensitivity [Recovered/Resolved]
  - Product supply issue [Unknown]

NARRATIVE: CASE EVENT DATE: 20220524
